FAERS Safety Report 11239201 (Version 1)
Quarter: 2015Q3

REPORT INFORMATION
  Report Type: Spontaneous
  Country: GB (occurrence: GB)
  Receive Date: 20150706
  Receipt Date: 20150706
  Transmission Date: 20151125
  Serious: Yes (Death, Other)
  Sender: FDA-Public Use
  Company Number: GB-ROCHE-1600478

PATIENT
  Age: 47 Year
  Sex: Male

DRUGS (1)
  1. ZELBORAF [Suspect]
     Active Substance: VEMURAFENIB
     Indication: PRODUCT USED FOR UNKNOWN INDICATION
     Route: 048
     Dates: start: 20120905

REACTIONS (8)
  - Arthralgia [Unknown]
  - Headache [Unknown]
  - Death [Fatal]
  - Aphasia [Unknown]
  - Sunburn [Unknown]
  - Hyperkeratosis [Unknown]
  - Weight increased [Unknown]
  - Metastases to meninges [Unknown]
